FAERS Safety Report 12411567 (Version 1)
Quarter: 2016Q2

REPORT INFORMATION
  Report Type: Spontaneous
  Country: US (occurrence: US)
  Receive Date: 20160527
  Receipt Date: 20160527
  Transmission Date: 20160815
  Serious: Yes (Other)
  Sender: FDA-Public Use
  Company Number: US-GLAXOSMITHKLINE-US2016GSK075469

PATIENT
  Age: 41 Year
  Sex: Male

DRUGS (4)
  1. HYDROXYCHLOROQUINE [Concomitant]
     Active Substance: HYDROXYCHLOROQUINE
  2. BELIMUMAB [Suspect]
     Active Substance: BELIMUMAB
     Indication: CUTANEOUS LUPUS ERYTHEMATOSUS
  3. AZATHIOPRINE. [Concomitant]
     Active Substance: AZATHIOPRINE
  4. PREDNISONE. [Concomitant]
     Active Substance: PREDNISONE
     Dosage: 60 MG, QD

REACTIONS (9)
  - Dyspnoea [Unknown]
  - Lethargy [Unknown]
  - Nocardiosis [Unknown]
  - Confusional state [Unknown]
  - Pyrexia [Unknown]
  - Chest pain [Unknown]
  - Pulmonary mass [Unknown]
  - Chills [Unknown]
  - Myalgia [Unknown]
